FAERS Safety Report 15009825 (Version 1)
Quarter: 2018Q2

REPORT INFORMATION
  Report Type: Spontaneous
  Country: US (occurrence: US)
  Receive Date: 20180614
  Receipt Date: 20180614
  Transmission Date: 20180711
  Serious: Yes (Other)
  Sender: FDA-Public Use
  Company Number: US-BEH-2018091517

PATIENT
  Sex: Female
  Weight: 48.73 kg

DRUGS (19)
  1. DIFLUCAN [Concomitant]
     Active Substance: FLUCONAZOLE
  2. HYDROCODONE BITARTRATE AND ACETAMINOPHEN [Concomitant]
     Active Substance: ACETAMINOPHEN\HYDROCODONE BITARTRATE
  3. EPINEPHRINE. [Concomitant]
     Active Substance: EPINEPHRINE
  4. BACTRIM [Concomitant]
     Active Substance: SULFAMETHOXAZOLE\TRIMETHOPRIM
  5. CALCIUM [Concomitant]
     Active Substance: CALCIUM
  6. DICYCLOMINE                        /00068601/ [Concomitant]
     Active Substance: DICYCLOMINE HYDROCHLORIDE
  7. METRONIDAZOLE. [Concomitant]
     Active Substance: METRONIDAZOLE
  8. HIZENTRA [Suspect]
     Active Substance: HUMAN IMMUNOGLOBULIN G
     Indication: COMBINED IMMUNODEFICIENCY
     Dosage: 5 G, QW
     Route: 058
     Dates: start: 20110606
  9. HIZENTRA [Suspect]
     Active Substance: HUMAN IMMUNOGLOBULIN G
     Dosage: UNK
     Route: 058
  10. VITAMIN D                          /00107901/ [Concomitant]
     Active Substance: ERGOCALCIFEROL
  11. TOLTERODINE [Concomitant]
     Active Substance: TOLTERODINE
  12. HIZENTRA [Suspect]
     Active Substance: HUMAN IMMUNOGLOBULIN G
     Dosage: UNK
     Route: 058
  13. LORAZEPAM. [Concomitant]
     Active Substance: LORAZEPAM
  14. DOXYCYCLINE. [Concomitant]
     Active Substance: DOXYCYCLINE
  15. DIPHENHYDRAMINE. [Concomitant]
     Active Substance: DIPHENHYDRAMINE
  16. CEPHALEXIN                         /00145501/ [Concomitant]
     Active Substance: CEPHALEXIN
  17. CARISOPRODOL. [Concomitant]
     Active Substance: CARISOPRODOL
  18. MAGNESIUM [Concomitant]
     Active Substance: MAGNESIUM
  19. CIPROFLOXACIN. [Concomitant]
     Active Substance: CIPROFLOXACIN

REACTIONS (2)
  - Dislocation of vertebra [Unknown]
  - Peripheral swelling [Unknown]
